FAERS Safety Report 4622975-8 (Version None)
Quarter: 2005Q2

REPORT INFORMATION
  Report Type: 
  Country: None (occurrence: None)
  Receive Date: 20050321
  Receipt Date: 20050216
  Transmission Date: 20051028
  Serious: Yes (Hospitalization, Other)
  Sender: FDA-Public Use
  Company Number: US-JNJFOC-20041203823

PATIENT
  Age: 37 Year
  Sex: Female
  Weight: 77.1115 kg

DRUGS (4)
  1. ORTHO EVRA [Suspect]
     Indication: CONTRACEPTION
     Dosage: 1 DOSE(S), 3 IN 4 WEEK, TRANSDERMAL
     Route: 062
     Dates: start: 20040201, end: 20040701
  2. PERCOCET [Concomitant]
  3. LEXAPRO [Concomitant]
  4. AMBIEN [Concomitant]

REACTIONS (1)
  - DEEP VEIN THROMBOSIS [None]
